FAERS Safety Report 7090505-X (Version None)
Quarter: 2010Q4

REPORT INFORMATION
  Report Type: 
  Country: None (occurrence: None)
  Receive Date: 20101109
  Receipt Date: 20101102
  Transmission Date: 20110411
  Serious: Yes (Death, Hospitalization)
  Sender: FDA-Public Use
  Company Number: PHHY2010US65247

PATIENT
  Sex: Male

DRUGS (7)
  1. EXJADE [Suspect]
     Indication: MYELODYSPLASTIC SYNDROME
     Dosage: 1000 MG, QD
     Dates: start: 20090615, end: 20100523
  2. EXJADE [Suspect]
     Indication: HAEMOCHROMATOSIS
     Dosage: 1000 MG, QD
     Route: 048
     Dates: start: 20100707, end: 20100827
  3. EXJADE [Suspect]
     Dosage: 1000 MG, QD
     Route: 048
     Dates: start: 20100501, end: 20100901
  4. CIPRO [Concomitant]
     Dosage: 500 MG, BID 7 DAYS
     Dates: start: 20100706, end: 20100817
  5. CIPRO [Concomitant]
     Dosage: 500 MG, BID 7 DAYS
     Dates: start: 20100818
  6. CIPRO [Concomitant]
     Dosage: 500 MG, BID  10 DAYS
     Dates: start: 20100913
  7. MEGACE ORAL [Concomitant]
     Dosage: 400 MG

REACTIONS (4)
  - MALIGNANT NEOPLASM PROGRESSION [None]
  - NAUSEA [None]
  - NEUTROPENIA [None]
  - VOMITING [None]
